FAERS Safety Report 24332888 (Version 1)
Quarter: 2024Q3

REPORT INFORMATION
  Report Type: Spontaneous
  Country: US (occurrence: US)
  Receive Date: 20240918
  Receipt Date: 20240918
  Transmission Date: 20241017
  Serious: No
  Sender: BAYER
  Company Number: US-BAYER-2024A132258

PATIENT
  Age: 40 Year
  Sex: Male

DRUGS (2)
  1. ALEVE [Suspect]
     Active Substance: NAPROXEN SODIUM
     Indication: Back pain
  2. DUPILUMAB [Suspect]
     Active Substance: DUPILUMAB

REACTIONS (4)
  - Eczema [None]
  - Pruritus [None]
  - Erythema [None]
  - Sleep disorder [None]
